FAERS Safety Report 6535880-7 (Version None)
Quarter: 2010Q1

REPORT INFORMATION
  Report Type: 
  Country: None (occurrence: None)
  Receive Date: 20100106
  Receipt Date: 20091221
  Transmission Date: 20100710
  Serious: Yes (Other)
  Sender: FDA-Public Use
  Company Number: DSA_42235_2009

PATIENT
  Sex: Male

DRUGS (8)
  1. ATIVAN [Suspect]
     Indication: DRUG USE FOR UNKNOWN INDICATION
     Dosage: (DF)
  2. CELEXA [Concomitant]
  3. PRILOSEC [Concomitant]
  4. CRESTOR /01588602/ [Concomitant]
  5. HYDROCODONE [Concomitant]
  6. ZANAFLEX [Concomitant]
  7. PLAVIX [Concomitant]
  8. OMEGA-3 /01168901/ [Concomitant]

REACTIONS (1)
  - LUNG NEOPLASM MALIGNANT [None]
